FAERS Safety Report 14356706 (Version 1)
Quarter: 2018Q1

REPORT INFORMATION
  Report Type: Spontaneous
  Country: DE (occurrence: DE)
  Receive Date: 20180105
  Receipt Date: 20180105
  Transmission Date: 20180509
  Serious: Yes (Other)
  Sender: FDA-Public Use
  Company Number: PHHY2018DE000807

PATIENT
  Sex: Female

DRUGS (1)
  1. OMEPRAZOL 1A PHARMA [Suspect]
     Active Substance: OMEPRAZOLE
     Indication: DYSPEPSIA
     Dosage: 20 MG, QD
     Route: 048

REACTIONS (8)
  - Eagle Barrett syndrome [Unknown]
  - Abnormal faeces [Unknown]
  - Faeces discoloured [Unknown]
  - Abdominal pain [Unknown]
  - Frequent bowel movements [Unknown]
  - Fatigue [Unknown]
  - Dyspepsia [Unknown]
  - Asthenia [Unknown]
